FAERS Safety Report 7671081-7 (Version None)
Quarter: 2011Q3

REPORT INFORMATION
  Report Type: 
  Country: None (occurrence: None)
  Receive Date: 20110809
  Receipt Date: 20110803
  Transmission Date: 20111222
  Serious: Yes (Other)
  Sender: FDA-Public Use
  Company Number: BR-AMGEN-BRASP2011036768

PATIENT
  Age: 41 Year
  Sex: Female
  Weight: 130 kg

DRUGS (1)
  1. ENBREL [Suspect]
     Indication: PSORIASIS
     Dosage: 50 MG, ONCE WEEKLY
     Route: 058
     Dates: start: 20100620, end: 20110425

REACTIONS (1)
  - SYSTEMIC LUPUS ERYTHEMATOSUS [None]
